FAERS Safety Report 20679239 (Version 6)
Quarter: 2022Q4

REPORT INFORMATION
  Report Type: Spontaneous
  Country: IN (occurrence: IN)
  Receive Date: 20220406
  Receipt Date: 20221114
  Transmission Date: 20230113
  Serious: Yes (Other)
  Sender: FDA-Public Use
  Company Number: IN-PFIZER INC-2020164417

PATIENT
  Age: 44 Year
  Sex: Female
  Weight: 58 kg

DRUGS (4)
  1. CRIZOTINIB [Suspect]
     Active Substance: CRIZOTINIB
     Indication: Lung neoplasm malignant
     Dosage: 250 MG, 2X/DAY
     Route: 048
     Dates: start: 20200410
  2. CLONAZEPAM [Concomitant]
     Active Substance: CLONAZEPAM
     Dosage: 0.25 MG, AT BEDTIME (HS)
     Dates: start: 20200227
  3. FESOVIT [Concomitant]
     Dosage: X 30 1-0-0
  4. LEVOCETIRIZINE [Concomitant]
     Active Substance: LEVOCETIRIZINE
     Dosage: 5 MG, DAILY (5MG 0-0-1 X 10DAYS)

REACTIONS (14)
  - Diabetes mellitus [Unknown]
  - Product dose omission issue [Unknown]
  - Insomnia [Unknown]
  - Sensory disturbance [Unknown]
  - Alanine aminotransferase increased [Unknown]
  - Weight decreased [Unknown]
  - Haemoglobin decreased [Unknown]
  - Pyrexia [Unknown]
  - Cough [Unknown]
  - Blood thyroid stimulating hormone increased [Unknown]
  - Protein total decreased [Unknown]
  - Chest pain [Unknown]
  - Hypertransaminasaemia [Unknown]
  - Weight increased [Unknown]

NARRATIVE: CASE EVENT DATE: 20200512
